FAERS Safety Report 9161437 (Version 1)
Quarter: 2012Q4

REPORT INFORMATION
  Report Type: 
  Country: US (occurrence: US)
  Receive Date: 20121227
  Receipt Date: 20121227
  Transmission Date: 20130627
  Serious: Yes (Other)
  Sender: FDA-Public Use
  Company Number: US-RB-048142-12

PATIENT
  Age: 18 Year
  Sex: Female

DRUGS (3)
  1. SUBOXONE TABLET [Suspect]
     Indication: DRUG DEPENDENCE
     Route: 065
     Dates: start: 2010
  2. WELLBUTRINE [Concomitant]
     Indication: DEPRESSION
     Route: 065
     Dates: start: 2008
  3. NICOTINE [Concomitant]
     Indication: PRODUCT USED FOR UNKNOWN INDICATION
     Dosage: 2 per day
     Route: 065
     Dates: start: 2001

REACTIONS (2)
  - Breech delivery [Recovered/Resolved]
  - Exposure during pregnancy [Recovered/Resolved]
